FAERS Safety Report 14516956 (Version 2)
Quarter: 2019Q4

REPORT INFORMATION
  Report Type: Spontaneous
  Country: US (occurrence: US)
  Receive Date: 20180212
  Receipt Date: 20191028
  Transmission Date: 20200122
  Serious: No
  Sender: FDA-Public Use
  Company Number: US-JNJFOC-20180201824

PATIENT
  Sex: Male

DRUGS (4)
  1. RISPERDAL [Suspect]
     Active Substance: RISPERIDONE
     Indication: AUTISM SPECTRUM DISORDER
     Route: 048
     Dates: start: 20080109, end: 20170824
  2. RISPERDAL [Suspect]
     Active Substance: RISPERIDONE
     Indication: APHASIA
  3. RISPERDAL [Suspect]
     Active Substance: RISPERIDONE
     Indication: APHASIA
  4. RISPERDAL [Suspect]
     Active Substance: RISPERIDONE
     Indication: AUTISM SPECTRUM DISORDER
     Route: 048
     Dates: start: 20100826, end: 20170909

REACTIONS (2)
  - Emotional distress [Unknown]
  - Gynaecomastia [Unknown]
